FAERS Safety Report 20741261 (Version 1)
Quarter: 2022Q2

REPORT INFORMATION
  Report Type: Spontaneous
  Country: GB (occurrence: GB)
  Receive Date: 20220422
  Receipt Date: 20220422
  Transmission Date: 20220721
  Serious: Yes (Other)
  Sender: FDA-Public Use
  Company Number: GB-TEVA-2022-GB-2027694

PATIENT
  Sex: Male

DRUGS (1)
  1. ALBUTEROL [Suspect]
     Active Substance: ALBUTEROL
     Indication: Asthma
     Dosage: 1-2 DOSES
     Route: 065
     Dates: start: 20211116

REACTIONS (2)
  - Malaise [Unknown]
  - Taste disorder [Unknown]

NARRATIVE: CASE EVENT DATE: 20220301
